FAERS Safety Report 4776496-2 (Version None)
Quarter: 2005Q3

REPORT INFORMATION
  Report Type: 
  Country: None (occurrence: None)
  Receive Date: 20050922
  Receipt Date: 20050914
  Transmission Date: 20060218
  Serious: Yes (Hospitalization)
  Sender: FDA-Public Use
  Company Number: US-MERCK-0509USA02105

PATIENT
  Sex: Female

DRUGS (2)
  1. VIOXX [Suspect]
     Indication: SYSTEMIC LUPUS ERYTHEMATOSUS
     Route: 048
     Dates: start: 20001001, end: 20010101
  2. VIOXX [Suspect]
     Indication: TENDON DISORDER
     Route: 048
     Dates: start: 20001001, end: 20010101

REACTIONS (4)
  - DEEP VEIN THROMBOSIS [None]
  - PULMONARY EMBOLISM [None]
  - PYREXIA [None]
  - TENDON DISORDER [None]
